FAERS Safety Report 23276994 (Version 1)
Quarter: 2023Q4

REPORT INFORMATION
  Report Type: Spontaneous
  Country: MX (occurrence: MX)
  Receive Date: 20231208
  Receipt Date: 20231208
  Transmission Date: 20240110
  Serious: Yes (Life-Threatening, Hospitalization, Other)
  Sender: FDA-Public Use
  Company Number: MX-MLMSERVICE-2023112146775921

PATIENT
  Age: 36 Year
  Sex: Male

DRUGS (3)
  1. MYCOPHENOLIC ACID [Suspect]
     Active Substance: MYCOPHENOLIC ACID
     Indication: Immunosuppressant drug therapy
     Dates: start: 2022, end: 2022
  2. TACROLIMUS [Suspect]
     Active Substance: TACROLIMUS
     Indication: Immunosuppressant drug therapy
     Dates: start: 2022, end: 2022
  3. PREDNISONE [Concomitant]
     Active Substance: PREDNISONE
     Indication: Immunosuppressant drug therapy
     Dates: start: 2022, end: 2022

REACTIONS (7)
  - Gastrointestinal wall thickening [Unknown]
  - Pseudomonas infection [Unknown]
  - Pneumobilia [Unknown]
  - Candida infection [Unknown]
  - Gastritis bacterial [Unknown]
  - Pneumoperitoneum [Unknown]
  - Gastrointestinal necrosis [Unknown]

NARRATIVE: CASE EVENT DATE: 20220101
